FAERS Safety Report 23473802 (Version 1)
Quarter: 2024Q1

REPORT INFORMATION
  Report Type: Spontaneous
  Country: BR (occurrence: BR)
  Receive Date: 20240203
  Receipt Date: 20240203
  Transmission Date: 20240410
  Serious: Yes (Other)
  Sender: FDA-Public Use
  Company Number: BR-JNJFOC-20240171804

PATIENT
  Age: 60 Year
  Sex: Female

DRUGS (5)
  1. STELARA [Suspect]
     Active Substance: USTEKINUMAB
     Indication: Crohn^s disease
     Route: 040
     Dates: start: 201910
  2. STELARA [Suspect]
     Active Substance: USTEKINUMAB
     Route: 058
  3. ADALIMUMAB [Concomitant]
     Active Substance: ADALIMUMAB\ISOPROPYL ALCOHOL
  4. MESALAMINE [Concomitant]
     Active Substance: MESALAMINE
  5. AZATHIOPRINE [Concomitant]
     Active Substance: AZATHIOPRINE

REACTIONS (3)
  - Gastrointestinal stenosis [Not Recovered/Not Resolved]
  - Enteritis [Unknown]
  - Weight increased [Unknown]
